FAERS Safety Report 8340630-8 (Version None)
Quarter: 2012Q2

REPORT INFORMATION
  Report Type: 
  Country: None (occurrence: None)
  Receive Date: 20120507
  Receipt Date: 20120427
  Transmission Date: 20120825
  Serious: Yes (Other)
  Sender: FDA-Public Use
  Company Number: US-ABBOTT-12P-163-0930177-00

PATIENT
  Sex: Female
  Weight: 80.812 kg

DRUGS (12)
  1. ZOLOFT [Concomitant]
     Indication: DEPRESSION
  2. AMBIEN [Concomitant]
     Indication: SLEEP DISORDER THERAPY
  3. NEURONTIN [Concomitant]
     Indication: FIBROMYALGIA
  4. HYDROCODONE [Concomitant]
     Indication: RHEUMATOID ARTHRITIS
  5. HUMIRA [Suspect]
     Indication: RHEUMATOID ARTHRITIS
     Dates: start: 20110101, end: 20120101
  6. PLAQUENIL [Concomitant]
     Indication: RHEUMATOID ARTHRITIS
  7. PREDNISONE [Concomitant]
     Indication: RHEUMATOID ARTHRITIS
  8. VITAMIN D [Concomitant]
     Indication: VITAMIN SUPPLEMENTATION
  9. PROMETRIUM [Concomitant]
     Indication: RHEUMATOID ARTHRITIS
  10. EVAMIST [Concomitant]
     Indication: HORMONE REPLACEMENT THERAPY
  11. FLEXERIL [Concomitant]
     Indication: FIBROMYALGIA
  12. LOVAZA [Concomitant]
     Indication: HYPERLIPIDAEMIA

REACTIONS (6)
  - INJECTION SITE SWELLING [None]
  - INJECTION SITE PRURITUS [None]
  - HYPERTENSION [None]
  - SWELLING [None]
  - URTICARIA [None]
  - PHARYNGEAL OEDEMA [None]
